FAERS Safety Report 22074197 (Version 4)
Quarter: 2024Q1

REPORT INFORMATION
  Report Type: Report from Study
  Country: JP (occurrence: JP)
  Receive Date: 20230308
  Receipt Date: 20240130
  Transmission Date: 20240410
  Serious: Yes (Other)
  Sender: FDA-Public Use
  Company Number: JP-UCBJ-CD202302485UCBPHAPROD

PATIENT
  Age: 4 Year
  Sex: Male
  Weight: 20.1 kg

DRUGS (3)
  1. VIMPAT [Suspect]
     Active Substance: LACOSAMIDE
     Indication: Generalised tonic-clonic seizure
     Dosage: UNK
     Route: 048
     Dates: start: 20230220
  2. VIMPAT [Suspect]
     Active Substance: LACOSAMIDE
     Dosage: 20 MILLIGRAM, 2X/DAY (BID)
     Route: 048
     Dates: start: 20230220, end: 20230226
  3. VIMPAT [Suspect]
     Active Substance: LACOSAMIDE
     Dosage: 40 MILLIGRAM, 2X/DAY (BID)
     Route: 048
     Dates: start: 20230227, end: 20230228

REACTIONS (1)
  - Epilepsy [Recovered/Resolved]

NARRATIVE: CASE EVENT DATE: 20230227
